FAERS Safety Report 4878591-6 (Version None)
Quarter: 2006Q1

REPORT INFORMATION
  Report Type: 
  Country: None (occurrence: None)
  Receive Date: 20060112
  Receipt Date: 20060104
  Transmission Date: 20060701
  Serious: Yes (Hospitalization)
  Sender: FDA-Public Use
  Company Number: DE-BOEHRINGER INGELHEIM PHARMACEUTICALS, INC.-2006-DE-00061DE

PATIENT
  Sex: Female
  Weight: 70 kg

DRUGS (3)
  1. MOBEC 7,5 MG TABLETTEN [Suspect]
     Route: 048
  2. ASPIRIN [Suspect]
     Route: 048
  3. DOXEPIN 25 [Suspect]
     Route: 048

REACTIONS (4)
  - DRUG ABUSER [None]
  - MULTIPLE DRUG OVERDOSE [None]
  - SOMNOLENCE [None]
  - SUICIDE ATTEMPT [None]
